FAERS Safety Report 15918717 (Version 1)
Quarter: 2019Q1

REPORT INFORMATION
  Report Type: Spontaneous
  Country: US (occurrence: US)
  Receive Date: 20190205
  Receipt Date: 20190205
  Transmission Date: 20190417
  Serious: No
  Sender: FDA-Public Use
  Company Number: US-BAYER-2019-022669

PATIENT
  Sex: Female
  Weight: 74.83 kg

DRUGS (3)
  1. LYRICA [Concomitant]
     Active Substance: PREGABALIN
     Indication: PAIN
     Dosage: 75 MG
     Route: 048
  2. ALEVE [Suspect]
     Active Substance: NAPROXEN SODIUM
     Indication: FACIAL PAIN
  3. ALEVE [Suspect]
     Active Substance: NAPROXEN SODIUM
     Indication: TRIGEMINAL NEURALGIA
     Dosage: 2 DF, BID
     Route: 048

REACTIONS (2)
  - Drug ineffective for unapproved indication [Unknown]
  - Incorrect dosage administered [Unknown]
